FAERS Safety Report 6542232-2 (Version None)
Quarter: 2010Q1

REPORT INFORMATION
  Report Type: 
  Country: None (occurrence: None)
  Receive Date: 20100119
  Receipt Date: 20100112
  Transmission Date: 20100710
  Serious: Yes (Hospitalization, Disabling)
  Sender: FDA-Public Use
  Company Number: B0624751A

PATIENT
  Sex: Female

DRUGS (9)
  1. SEROXAT [Suspect]
     Indication: ANXIETY
     Dosage: 20MG PER DAY
     Route: 065
     Dates: start: 20020622, end: 20040212
  2. CETIRIZINE HYDROCHLORIDE [Concomitant]
     Route: 065
  3. ACETAMINOPHEN WITH PROPOXYPHENE HCL TAB [Concomitant]
     Route: 065
  4. DIAZEPAM [Concomitant]
     Route: 065
  5. GROWTH HORMONE [Concomitant]
     Route: 065
  6. HORMONE REPLACEMENT THERAPY [Concomitant]
     Route: 065
  7. HYDROXYZINE [Concomitant]
     Route: 065
  8. ROFECOXIB [Concomitant]
     Route: 065
  9. LEVOTHYROXINE SODIUM [Concomitant]
     Route: 065

REACTIONS (9)
  - ACCIDENTAL OVERDOSE [None]
  - DRUG WITHDRAWAL SYNDROME [None]
  - FLUSHING [None]
  - HYPERHIDROSIS [None]
  - NAUSEA [None]
  - PARAESTHESIA [None]
  - POOR QUALITY SLEEP [None]
  - SUICIDAL IDEATION [None]
  - TREMOR [None]
